FAERS Safety Report 14970240 (Version 1)
Quarter: 2018Q2

REPORT INFORMATION
  Report Type: Spontaneous
  Country: US (occurrence: US)
  Receive Date: 20180604
  Receipt Date: 20180604
  Transmission Date: 20180711
  Serious: No
  Sender: FDA-Public Use
  Company Number: US-ALLERGAN-1828701US

PATIENT
  Age: 20 Year
  Sex: Female

DRUGS (1)
  1. TAYTULLA [Suspect]
     Active Substance: ETHINYL ESTRADIOL\NORETHINDRONE ACETATE
     Indication: CONTRACEPTION
     Dosage: UNK, QD
     Route: 048
     Dates: start: 201802, end: 20180522

REACTIONS (2)
  - Drug ineffective [Unknown]
  - Pregnancy [Unknown]

NARRATIVE: CASE EVENT DATE: 20180522
